FAERS Safety Report 13458968 (Version 7)
Quarter: 2020Q4

REPORT INFORMATION
  Report Type: Report from Study
  Country: US (occurrence: US)
  Receive Date: 20170419
  Receipt Date: 20201109
  Transmission Date: 20210113
  Serious: No
  Sender: FDA-Public Use
  Company Number: PHEH2017US011377

PATIENT
  Sex: Male

DRUGS (1)
  1. COSENTYX [Suspect]
     Active Substance: SECUKINUMAB
     Indication: PRODUCT USED FOR UNKNOWN INDICATION
     Dosage: 150 MG, QMO
     Route: 058

REACTIONS (7)
  - Hypertension [Unknown]
  - Product dose omission issue [Unknown]
  - Headache [Unknown]
  - Confusional state [Unknown]
  - Drug ineffective [Unknown]
  - Migraine [Unknown]
  - Psoriasis [Unknown]
